FAERS Safety Report 6085923-2 (Version None)
Quarter: 2009Q1

REPORT INFORMATION
  Report Type: 
  Country: None (occurrence: None)
  Receive Date: 20090217
  Receipt Date: 20090217
  Transmission Date: 20090719
  Serious: Yes (Other)
  Sender: FDA-Public Use
  Company Number: None

PATIENT
  Sex: Male
  Weight: 86.637 kg

DRUGS (1)
  1. HYDROCHLOROTHIAZIDE 25MG TAB [Suspect]
     Indication: HYPERTENSION
     Dosage: 25 MG 1/DAY
     Dates: start: 20090210, end: 20090213

REACTIONS (1)
  - HYPERSENSITIVITY [None]
